FAERS Safety Report 10208741 (Version 1)
Quarter: 2014Q2

REPORT INFORMATION
  Report Type: Report from Study
  Country: US (occurrence: US)
  Receive Date: 20140530
  Receipt Date: 20140530
  Transmission Date: 20141212
  Serious: Yes (Death)
  Sender: FDA-Public Use
  Company Number: US-TAKEDA-2014TUS004279

PATIENT
  Sex: Male

DRUGS (2)
  1. COLCRYS [Suspect]
     Dosage: 1 DF, QD
     Route: 048
  2. ULORIC [Suspect]
     Dosage: 1 DF, QD
     Route: 048

REACTIONS (1)
  - Death [Fatal]
